FAERS Safety Report 10146976 (Version 1)
Quarter: 2014Q2

REPORT INFORMATION
  Report Type: Spontaneous
  Country: US (occurrence: US)
  Receive Date: 20140501
  Receipt Date: 20140501
  Transmission Date: 20141212
  Serious: Yes (Death)
  Sender: FDA-Public Use
  Company Number: US-GLAXOSMITHKLINE-A1071449A

PATIENT
  Age: 51 Year
  Sex: Female

DRUGS (3)
  1. HYCAMTIN [Suspect]
     Indication: OVARIAN CANCER
     Dosage: .25MG PER DAY
     Route: 048
  2. VOTRIENT [Suspect]
     Indication: OVARIAN CANCER
     Dosage: 200MG TWICE PER DAY
     Route: 048
  3. UNKNOWN [Concomitant]

REACTIONS (1)
  - Death [Fatal]
